FAERS Safety Report 17650966 (Version 3)
Quarter: 2020Q3

REPORT INFORMATION
  Report Type: Spontaneous
  Country: DE (occurrence: DE)
  Receive Date: 20200409
  Receipt Date: 20200706
  Transmission Date: 20201102
  Serious: No
  Sender: FDA-Public Use
  Company Number: DE-JNJFOC-20200345268

PATIENT
  Age: 42 Year
  Sex: Male

DRUGS (1)
  1. STELARA [Suspect]
     Active Substance: USTEKINUMAB
     Indication: CROHN^S DISEASE
     Dosage: INFUSION DOSE WAS 390 MG
     Route: 058
     Dates: start: 20191024, end: 20191209

REACTIONS (1)
  - Liver function test abnormal [Recovered/Resolved]
